FAERS Safety Report 23947743 (Version 2)
Quarter: 2024Q2

REPORT INFORMATION
  Report Type: Spontaneous
  Country: US (occurrence: US)
  Receive Date: 20240606
  Receipt Date: 20240626
  Transmission Date: 20240716
  Serious: Yes (Other)
  Sender: FDA-Public Use
  Company Number: US-APELLIS-2024-APL-0000096

PATIENT

DRUGS (1)
  1. SYFOVRE [Suspect]
     Active Substance: PEGCETACOPLAN
     Indication: Product used for unknown indication
     Dosage: 1ST AND ONLY SYFOVRE, OD
     Dates: start: 20240311, end: 20240311

REACTIONS (1)
  - Choroidal neovascularisation [Not Recovered/Not Resolved]

NARRATIVE: CASE EVENT DATE: 20240401
